FAERS Safety Report 10876976 (Version 2)
Quarter: 2015Q1

REPORT INFORMATION
  Report Type: Spontaneous
  Country: US (occurrence: US)
  Receive Date: 20150302
  Receipt Date: 20150304
  Transmission Date: 20150721
  Serious: No
  Sender: FDA-Public Use
  Company Number: US-ASTRAZENECA-2015SE17632

PATIENT
  Sex: Male
  Weight: 123.8 kg

DRUGS (15)
  1. ASPIRIN. [Concomitant]
     Active Substance: ASPIRIN
  2. LISINOPRIL. [Concomitant]
     Active Substance: LISINOPRIL
  3. METFORMIN [Concomitant]
     Active Substance: METFORMIN HYDROCHLORIDE
  4. COENZYME Q10 [Concomitant]
     Active Substance: UBIDECARENONE
  5. FUROSEMIDE. [Concomitant]
     Active Substance: FUROSEMIDE
  6. RED RICE YEAST [Concomitant]
  7. NIACIN. [Concomitant]
     Active Substance: NIACIN
  8. INVOKANA [Concomitant]
     Active Substance: CANAGLIFLOZIN
  9. CINNAMON. [Concomitant]
     Active Substance: CINNAMON
  10. BYDUREON [Suspect]
     Active Substance: EXENATIDE
     Indication: TYPE 2 DIABETES MELLITUS
     Route: 058
  11. OMPERAZOLE [Concomitant]
     Active Substance: OMEPRAZOLE
  12. MULTI-VITAMINS [Concomitant]
  13. CRESTOR [Suspect]
     Active Substance: ROSUVASTATIN CALCIUM
     Route: 048
  14. SERTRALINE [Concomitant]
     Active Substance: SERTRALINE HYDROCHLORIDE
  15. VITAMIN B-3 [Concomitant]

REACTIONS (3)
  - Injection site mass [Unknown]
  - Nausea [Unknown]
  - Nephrolithiasis [Unknown]
